FAERS Safety Report 17266291 (Version 2)
Quarter: 2020Q1

REPORT INFORMATION
  Report Type: Spontaneous
  Country: US (occurrence: US)
  Receive Date: 20200114
  Receipt Date: 20200226
  Transmission Date: 20200409
  Serious: Yes (Death, Life-Threatening, Other)
  Sender: FDA-Public Use
  Company Number: US-AMGEN-USASP2020003819

PATIENT

DRUGS (1)
  1. BLINATUMOMAB [Suspect]
     Active Substance: BLINATUMOMAB
     Indication: ACUTE LYMPHOCYTIC LEUKAEMIA
     Dosage: UNK
     Route: 065

REACTIONS (8)
  - Hepatotoxicity [Unknown]
  - Headache [Unknown]
  - Cerebrovascular accident [Unknown]
  - Venoocclusive liver disease [Unknown]
  - Seizure [Unknown]
  - Toxicity to various agents [Fatal]
  - Cytokine release syndrome [Unknown]
  - Encephalopathy [Unknown]
